FAERS Safety Report 23352310 (Version 1)
Quarter: 2023Q4

REPORT INFORMATION
  Report Type: Spontaneous
  Country: RO (occurrence: RO)
  Receive Date: 20231229
  Receipt Date: 20231229
  Transmission Date: 20240110
  Serious: Yes (Death)
  Sender: FDA-Public Use
  Company Number: RO-BIOGEN-2023BI01242296

PATIENT
  Age: 0 Year
  Sex: Male
  Weight: 5.2 kg

DRUGS (5)
  1. SPINRAZA [Suspect]
     Active Substance: NUSINERSEN
     Indication: Spinal muscular atrophy
     Dosage: 1ST-3RD LOADING DOSE
     Route: 050
     Dates: start: 20231011, end: 20231108
  2. SPINRAZA [Suspect]
     Active Substance: NUSINERSEN
     Dosage: 4TH LOADING DOSE
     Route: 050
     Dates: start: 20231213, end: 20231213
  3. SYNAGIS [Concomitant]
     Active Substance: PALIVIZUMAB
     Indication: Product used for unknown indication
     Dosage: FIRST DOSE
     Route: 050
     Dates: start: 2023, end: 2023
  4. SYNAGIS [Concomitant]
     Active Substance: PALIVIZUMAB
     Dosage: SECOND DOSE
     Route: 050
     Dates: start: 202312, end: 202312
  5. FUROSEMIDE [Concomitant]
     Active Substance: FUROSEMIDE
     Indication: Micturition disorder
     Route: 050
     Dates: start: 202312, end: 202312

REACTIONS (3)
  - Pneumonia [Fatal]
  - Acute respiratory failure [Fatal]
  - Cardio-respiratory arrest [Fatal]

NARRATIVE: CASE EVENT DATE: 20231216
